FAERS Safety Report 9689736 (Version 2)
Quarter: 2014Q1

REPORT INFORMATION
  Report Type: Report from Study
  Country: CA (occurrence: CA)
  Receive Date: 20131115
  Receipt Date: 20140303
  Transmission Date: 20141002
  Serious: Yes (Other)
  Sender: FDA-Public Use
  Company Number: CA-JNJFOC-20131106011

PATIENT
  Age: 33 Year
  Sex: Male
  Weight: 82.3 kg

DRUGS (3)
  1. REMICADE [Suspect]
     Indication: COLITIS ULCERATIVE
     Dosage: ONCE IN 0,2,6,8 WEEKS
     Route: 042
     Dates: start: 20131008, end: 20131202
  2. IMURAN [Concomitant]
     Route: 048
     Dates: start: 20130918
  3. PREDNISONE [Concomitant]
     Route: 048
     Dates: start: 20130916

REACTIONS (1)
  - Colectomy [Unknown]
